FAERS Safety Report 5465782-9 (Version None)
Quarter: 2007Q3

REPORT INFORMATION
  Report Type: 
  Country: None (occurrence: None)
  Receive Date: 20070924
  Receipt Date: 20070917
  Transmission Date: 20080115
  Serious: Yes (Hospitalization)
  Sender: FDA-Public Use
  Company Number: B0487666A

PATIENT
  Age: 67 Year
  Sex: Female
  Weight: 76 kg

DRUGS (2)
  1. TOPOTECAN [Suspect]
     Dosage: .75MGM2 SEE DOSAGE TEXT
     Route: 042
  2. CISPLATIN [Suspect]
     Dosage: 50MGM2 SEE DOSAGE TEXT
     Route: 042

REACTIONS (3)
  - HAEMATURIA [None]
  - PANCYTOPENIA [None]
  - PYREXIA [None]
